FAERS Safety Report 13514871 (Version 5)
Quarter: 2017Q3

REPORT INFORMATION
  Report Type: Report from Study
  Country: BR (occurrence: BR)
  Receive Date: 20170504
  Receipt Date: 20170925
  Transmission Date: 20171127
  Serious: Yes (Death, Hospitalization, Other)
  Sender: FDA-Public Use
  Company Number: BR-TAKEDA-2016TUS020733

PATIENT
  Sex: Female
  Weight: 64 kg

DRUGS (1)
  1. VEDOLIZUMAB [Suspect]
     Active Substance: VEDOLIZUMAB
     Indication: CROHN^S DISEASE
     Dosage: 300 MG, UNK
     Route: 042
     Dates: start: 20161110

REACTIONS (9)
  - Respiratory failure [Unknown]
  - Dyspnoea [Unknown]
  - Weight decreased [Unknown]
  - Pneumonia [Unknown]
  - Dizziness [Unknown]
  - Crohn^s disease [Fatal]
  - Fatigue [Unknown]
  - Pain [Unknown]
  - Inappropriate schedule of drug administration [Unknown]
